FAERS Safety Report 24272226 (Version 1)
Quarter: 2024Q3

REPORT INFORMATION
  Report Type: Spontaneous
  Country: US (occurrence: US)
  Receive Date: 20240902
  Receipt Date: 20240902
  Transmission Date: 20241016
  Serious: No
  Sender: BRISTOL MYERS SQUIBB
  Company Number: US-BRISTOL-MYERS SQUIBB COMPANY-2024-137006

PATIENT

DRUGS (2)
  1. POMALYST [Suspect]
     Active Substance: POMALIDOMIDE
     Indication: Product used for unknown indication
     Dosage: DOSE : UNKNOWN;     FREQ : UNKNOWN
     Dates: start: 20240809
  2. POMALYST [Suspect]
     Active Substance: POMALIDOMIDE

REACTIONS (1)
  - Adverse event [Unknown]
